FAERS Safety Report 10038554 (Version 2)
Quarter: 2014Q2

REPORT INFORMATION
  Report Type: Spontaneous
  Country: US (occurrence: US)
  Receive Date: 20140326
  Receipt Date: 20140501
  Transmission Date: 20141212
  Serious: No
  Sender: FDA-Public Use
  Company Number: US-009507513-1403USA008894

PATIENT
  Sex: Female
  Weight: 98.41 kg

DRUGS (2)
  1. NEXPLANON [Suspect]
     Dosage: 68 MG/ONE ROD EVERY THREE YEARS
     Route: 059
     Dates: start: 20131218, end: 20140408
  2. NEXPLANON [Suspect]
     Dosage: UNK
     Route: 059
     Dates: start: 20140414

REACTIONS (2)
  - Device breakage [Unknown]
  - No adverse event [Unknown]
